FAERS Safety Report 20692722 (Version 4)
Quarter: 2022Q2

REPORT INFORMATION
  Report Type: Spontaneous
  Country: JP (occurrence: JP)
  Receive Date: 20220409
  Receipt Date: 20220608
  Transmission Date: 20220720
  Serious: Yes (Death, Life-Threatening, Other)
  Sender: FDA-Public Use
  Company Number: JP-MSD-2204JPN000870J

PATIENT
  Age: 96 Year
  Sex: Male
  Weight: 39 kg

DRUGS (6)
  1. MOLNUPIRAVIR [Suspect]
     Active Substance: MOLNUPIRAVIR
     Indication: COVID-19 treatment
     Dosage: 800 MILLIGRAM, BID
     Route: 048
     Dates: start: 20220218, end: 20220223
  2. SILODOSIN OD [Concomitant]
     Indication: Benign prostatic hyperplasia
     Dosage: 4 MILLIGRAM, BID
     Route: 048
     Dates: start: 20200907, end: 20220226
  3. ETIZOLAM [Concomitant]
     Active Substance: ETIZOLAM
     Dosage: 0.5 MILLIGRAM, BID
     Route: 048
     Dates: start: 20200907, end: 20220226
  4. JANUVIA [Concomitant]
     Active Substance: SITAGLIPTIN PHOSPHATE
     Indication: Diabetes mellitus
     Dosage: 25 MILLIGRAM, QD
     Route: 048
     Dates: start: 20200907, end: 20220226
  5. METFORMIN HYDROCHLORIDE [Concomitant]
     Active Substance: METFORMIN HYDROCHLORIDE
     Indication: Diabetes mellitus
     Dosage: 250 MILLIGRAM, TID
     Route: 048
     Dates: start: 20200907, end: 20220226
  6. LANSOPRAZOLE [Concomitant]
     Active Substance: LANSOPRAZOLE
     Indication: Gastrooesophageal reflux disease
     Dosage: 15 MILLIGRAM, QD
     Route: 048
     Dates: start: 20211101, end: 20220226

REACTIONS (2)
  - Pneumonia aspiration [Fatal]
  - Respiratory failure [Fatal]

NARRATIVE: CASE EVENT DATE: 20220222
